FAERS Safety Report 17816872 (Version 1)
Quarter: 2020Q2

REPORT INFORMATION
  Report Type: Spontaneous
  Country: AU (occurrence: AU)
  Receive Date: 20200522
  Receipt Date: 20200522
  Transmission Date: 20200714
  Serious: Yes (Hospitalization)
  Sender: FDA-Public Use
  Company Number: AU-SHIRE-AU202016759

PATIENT

DRUGS (5)
  1. MEZAVANT [Suspect]
     Active Substance: MESALAMINE
     Indication: COLITIS
     Dosage: 4.8 GRAM, 1X/DAY:QD (FOUR TABLETS OF 1.2G DAILY)
     Route: 048
  2. JANUMET [Concomitant]
     Active Substance: METFORMIN HYDROCHLORIDE\SITAGLIPTIN PHOSPHATE
     Indication: BLOOD GLUCOSE ABNORMAL
  3. PREDNISOLONE. [Concomitant]
     Active Substance: PREDNISOLONE
     Indication: BACK PAIN
  4. OSTEO [CALCIUM] [Concomitant]
     Indication: BACK PAIN
  5. PARACETAMOL [Concomitant]
     Active Substance: ACETAMINOPHEN
     Indication: BACK PAIN

REACTIONS (4)
  - Feeling abnormal [Unknown]
  - Fall [Unknown]
  - Balance disorder [Unknown]
  - Feeling drunk [Unknown]
